FAERS Safety Report 4339858-3 (Version None)
Quarter: 2004Q2

REPORT INFORMATION
  Report Type: 
  Country: None (occurrence: None)
  Receive Date: 20040415
  Receipt Date: 20040415
  Transmission Date: 20050107
  Serious: Yes (Other)
  Sender: FDA-Public Use
  Company Number: None

PATIENT

DRUGS (1)
  1. APLISOL [Suspect]
     Indication: TUBERCULIN TEST
     Dosage: 5U INJECTION
     Route: 023

REACTIONS (4)
  - ERYTHEMA [None]
  - INDURATION [None]
  - PHARMACEUTICAL PRODUCT COMPLAINT [None]
  - TUBERCULIN TEST POSITIVE [None]
